FAERS Safety Report 14775428 (Version 1)
Quarter: 2018Q2

REPORT INFORMATION
  Report Type: Spontaneous
  Country: JP (occurrence: JP)
  Receive Date: 20180418
  Receipt Date: 20180418
  Transmission Date: 20180711
  Serious: Yes (Other)
  Sender: FDA-Public Use
  Company Number: JP-PFIZER INC-2018153867

PATIENT
  Age: 75 Year
  Sex: Male

DRUGS (1)
  1. SOLU-MEDROL [Suspect]
     Active Substance: METHYLPREDNISOLONE SODIUM SUCCINATE
     Indication: STATUS ASTHMATICUS
     Dosage: 125 MG, DAILY

REACTIONS (2)
  - Diabetes mellitus [Unknown]
  - Condition aggravated [Unknown]
